FAERS Safety Report 9538650 (Version 1)
Quarter: 2013Q2

REPORT INFORMATION
  Report Type: Spontaneous
  Country: US (occurrence: None)
  Receive Date: 20130507
  Receipt Date: 20130507
  Transmission Date: 20140414
  Serious: No
  Sender: FDA-Public Use
  Company Number: PHEH2013US001398

PATIENT
  Age: 3 Year
  Sex: Male

DRUGS (3)
  1. AFINITOR (RAD) UNKNOWN [Suspect]
     Indication: TUBEROUS SCLEROSIS
     Route: 048
     Dates: start: 20130101, end: 20130104
  2. VIGABATRIN (BIGABATRIN) [Concomitant]
  3. TAURINE (TAURINE) [Concomitant]

REACTIONS (2)
  - Cough [None]
  - Pyrexia [None]
